FAERS Safety Report 10534525 (Version 2)
Quarter: 2014Q4

REPORT INFORMATION
  Report Type: Report from Study
  Country: AU (occurrence: AU)
  Receive Date: 20141022
  Receipt Date: 20141029
  Transmission Date: 20150529
  Serious: Yes (Death, Other)
  Sender: FDA-Public Use
  Company Number: AU-GLAXOSMITHKLINE-AU2014003119

PATIENT
  Age: 82 Year
  Sex: Female

DRUGS (4)
  1. BLINDED ZANAMIVIR [Suspect]
     Active Substance: ZANAMIVIR
     Indication: INFLUENZA
     Dosage: UNK UNK, BID
     Route: 042
     Dates: start: 20140920, end: 20140925
  2. BLINDED NO THERAPY [Suspect]
     Active Substance: UNSPECIFIED INGREDIENT
     Indication: INFLUENZA
     Dosage: UNK UNK, BID
     Route: 042
     Dates: start: 20140920, end: 20140925
  3. BLINDED OSELTAMIVIR PHOSPHATE [Suspect]
     Active Substance: OSELTAMIVIR PHOSPHATE
     Indication: INFLUENZA
     Dosage: UNK UNK, BID
     Route: 042
     Dates: start: 20140920, end: 20140925
  4. BLINDED ZANAMIVIR [Suspect]
     Active Substance: ZANAMIVIR
     Indication: INFLUENZA
     Dosage: UNK UNK, BID
     Route: 042
     Dates: start: 20140920, end: 20140925

REACTIONS (2)
  - Acute respiratory distress syndrome [Fatal]
  - Pneumonia [Fatal]

NARRATIVE: CASE EVENT DATE: 20140921
